FAERS Safety Report 6296214-9 (Version None)
Quarter: 2009Q3

REPORT INFORMATION
  Report Type: 
  Country: None (occurrence: None)
  Receive Date: 20090804
  Receipt Date: 20090728
  Transmission Date: 20100115
  Serious: Yes (Life-Threatening, Other)
  Sender: FDA-Public Use
  Company Number: DE-CELGENEUS-062-21880-09072085

PATIENT

DRUGS (1)
  1. REVLIMID [Suspect]
     Route: 048
     Dates: start: 20090629

REACTIONS (1)
  - THROMBOCYTOPENIA [None]
